FAERS Safety Report 7777609-0 (Version None)
Quarter: 2011Q3

REPORT INFORMATION
  Report Type: 
  Country: None (occurrence: None)
  Receive Date: 20110926
  Receipt Date: 20110916
  Transmission Date: 20111222
  Serious: Yes (Other)
  Sender: FDA-Public Use
  Company Number: US-BAYER-200939579NA

PATIENT
  Age: 35 Year
  Sex: Male
  Weight: 98 kg

DRUGS (8)
  1. FRESH FROZEN PLASMA [Concomitant]
     Dosage: UNK
     Dates: start: 20030606
  2. HEPARIN [Concomitant]
     Dosage: UNK
     Dates: start: 20030606
  3. VANCOMYCIN [Concomitant]
     Dosage: UNK
     Dates: start: 20030606
  4. PLATELETS [Concomitant]
     Dosage: UNK
     Dates: start: 20030606
  5. FENTANYL [Concomitant]
     Dosage: UNK
     Dates: start: 20030606
  6. PROTAMINE [Concomitant]
     Dosage: UNK
     Dates: start: 20030606
  7. RED BLOOD CELLS [Concomitant]
     Dosage: UNK
     Dates: start: 20030606
  8. TRASYLOL [Suspect]
     Indication: AORTIC VALVE REPLACEMENT
     Dosage: UNK
     Route: 042
     Dates: start: 20030606, end: 20030606

REACTIONS (6)
  - UNEVALUABLE EVENT [None]
  - MENTAL DISORDER [None]
  - RENAL FAILURE ACUTE [None]
  - RENAL FAILURE [None]
  - INJURY [None]
  - PAIN [None]
